FAERS Safety Report 4879496-7 (Version None)
Quarter: 2005Q4

REPORT INFORMATION
  Report Type: 
  Country: None (occurrence: None)
  Receive Date: 20051209
  Receipt Date: 20050930
  Transmission Date: 20060501
  Serious: Yes (Death)
  Sender: FDA-Public Use
  Company Number: USA-2005-0021379

PATIENT
  Age: 52 Year
  Sex: Female
  Weight: 76.6 kg

DRUGS (16)
  1. CARBON MONOXIDE [Suspect]
  2. CODEINE (CODEINE) [Suspect]
  3. HYDROCODONE BITARTRATE [Suspect]
  4. FLUCONAZOLE [Suspect]
  5. DIAZEPAM [Suspect]
  6. ALPRAZOLAM [Suspect]
  7. CYCLOBENZAPRINE (CYCLOBENZAPRINE) [Suspect]
  8. OLANZAPINE [Suspect]
  9. VERAPAMIL [Suspect]
  10. PROMETHAZINE [Suspect]
  11. AMINOPHYLLINE [Concomitant]
  12. VASOTEC [Concomitant]
  13. VERAPAMIL [Concomitant]
  14. VALIUM [Concomitant]
  15. LORTAB [Concomitant]
  16. ESTRATEST [Concomitant]

REACTIONS (3)
  - EPISTAXIS [None]
  - MULTIPLE DRUG OVERDOSE ACCIDENTAL [None]
  - VOMITING [None]
